FAERS Safety Report 24445477 (Version 1)
Quarter: 2024Q4

REPORT INFORMATION
  Report Type: Spontaneous
  Country: FR (occurrence: FR)
  Receive Date: 20241016
  Receipt Date: 20241016
  Transmission Date: 20250115
  Serious: Yes (Death, Other)
  Sender: SANOFI AVENTIS
  Company Number: None

PATIENT
  Age: 72 Year
  Sex: Male
  Weight: 90 kg

DRUGS (2)
  1. LOVENOX [Suspect]
     Active Substance: ENOXAPARIN SODIUM
     Indication: Thrombophlebitis
     Dosage: 20000 IU, QD (10000 UI 2X/J)
     Route: 058
     Dates: start: 20240725, end: 20240731
  2. HEPARIN SODIUM [Suspect]
     Active Substance: HEPARIN SODIUM
     Indication: Thrombophlebitis
     Dosage: 45600.000[IU] INTERNATION UNIT(S) QD
     Route: 042
     Dates: start: 20240720, end: 20240725

REACTIONS (2)
  - Condition aggravated [Fatal]
  - Subdural haematoma [Fatal]

NARRATIVE: CASE EVENT DATE: 20240729
